FAERS Safety Report 20905463 (Version 1)
Quarter: 2022Q2

REPORT INFORMATION
  Report Type: Spontaneous
  Country: US (occurrence: None)
  Receive Date: 20220601
  Receipt Date: 20220601
  Transmission Date: 20220720
  Serious: Yes (Other)
  Sender: FDA-Public Use
  Company Number: None

PATIENT
  Age: 32 Year
  Sex: Female
  Weight: 66.4 kg

DRUGS (1)
  1. INFED [Suspect]
     Active Substance: IRON DEXTRAN
     Indication: Iron deficiency anaemia
     Dosage: FREQUENCY : ONCE;?
     Route: 042
     Dates: start: 20220520, end: 20220520

REACTIONS (4)
  - Chest discomfort [None]
  - Feeling hot [None]
  - Respiratory distress [None]
  - Oxygen saturation decreased [None]

NARRATIVE: CASE EVENT DATE: 20220520
